FAERS Safety Report 20734285 (Version 1)
Quarter: 2022Q2

REPORT INFORMATION
  Report Type: Spontaneous
  Country: US (occurrence: None)
  Receive Date: 20220420
  Receipt Date: 20220420
  Transmission Date: 20220721
  Serious: No
  Sender: FDA-Public Use
  Company Number: None

PATIENT
  Age: 54 Year
  Sex: Female
  Weight: 71.21 kg

DRUGS (17)
  1. CAPECITABINE [Suspect]
     Active Substance: CAPECITABINE
     Dosage: FREQUENCY : TWICE A DAY;?
     Route: 048
  2. FLUOROURACIL [Concomitant]
  3. GABAPENTIN [Concomitant]
     Active Substance: GABAPENTIN
  4. IRINOTECAN HCI [Concomitant]
  5. LACTULOSE [Concomitant]
  6. LEVOLEUCOVORIN [Concomitant]
  7. LISINOPRIL [Concomitant]
     Active Substance: LISINOPRIL
  8. LORAZEPAM [Concomitant]
     Active Substance: LORAZEPAM
  9. MEGESTROL ACETATE [Concomitant]
  10. MIRALOAX [Concomitant]
  11. MORPHINE SULFATE [Concomitant]
  12. NORMAL SALINE FLUSH [Concomitant]
  13. OXALIPLATIN [Concomitant]
     Active Substance: OXALIPLATIN
  14. PEPCID [Concomitant]
  15. POTASSIUM CHLORIDE ER [Concomitant]
  16. PROCHLORPERAZINE MALEATE [Concomitant]
  17. ZOFRAN [Concomitant]

REACTIONS (1)
  - Disease progression [None]
